FAERS Safety Report 9028809 (Version 2)
Quarter: 2013Q1

REPORT INFORMATION
  Report Type: Report from Study
  Country: DE (occurrence: DE)
  Receive Date: 20130124
  Receipt Date: 20130128
  Transmission Date: 20140127
  Serious: Yes (Death, Congenital Anomaly)
  Sender: FDA-Public Use
  Company Number: DE-UCBSA-076487

PATIENT
  Sex: 0

DRUGS (2)
  1. LEVETIRACETAM [Suspect]
     Indication: EPILEPSY
     Dosage: MAXIMUM SINGLE DOSE: 1000 MG
     Route: 064
     Dates: start: 200206
  2. OXCARBAZEPINE [Suspect]
     Indication: EPILEPSY
     Dosage: MAXIMUM SINGLE DOSE:600 MG
     Route: 064
     Dates: start: 200209

REACTIONS (2)
  - Foetal disorder [Fatal]
  - Foetal exposure during pregnancy [Recovered/Resolved]
